FAERS Safety Report 5744479-1 (Version None)
Quarter: 2008Q2

REPORT INFORMATION
  Report Type: 
  Country: None (occurrence: None)
  Receive Date: 20080520
  Receipt Date: 20080514
  Transmission Date: 20081010
  Serious: Yes (Hospitalization, Other)
  Sender: FDA-Public Use
  Company Number: BR-ASTRAZENECA-2008UW07782

PATIENT
  Age: 80 Year
  Sex: Female
  Weight: 75 kg

DRUGS (11)
  1. ARIMIDEX [Suspect]
     Indication: BREAST CANCER
     Route: 048
     Dates: start: 20050815, end: 20080101
  2. FASLODEX [Suspect]
     Indication: BREAST CANCER
     Route: 030
     Dates: start: 20080101
  3. CRESTOR [Suspect]
     Indication: HYPERCHOLESTEROLAEMIA
     Route: 048
     Dates: start: 20070101
  4. TAMOXIFENO [Suspect]
     Indication: BREAST CANCER
     Route: 048
     Dates: start: 20040601, end: 20050801
  5. MODURETIC 5-50 [Concomitant]
     Indication: HYPERTENSION
     Route: 048
     Dates: start: 19880101
  6. RENITEC [Concomitant]
     Indication: HYPERTENSION
     Route: 048
     Dates: start: 19930101, end: 20080331
  7. LEVOTHROID [Concomitant]
     Indication: GOITRE
     Route: 048
     Dates: start: 20030101
  8. VENOCUR TRIPLEX [Concomitant]
     Indication: ANTICOAGULANT THERAPY
     Route: 048
     Dates: start: 20050101
  9. LEXOTAN [Concomitant]
     Indication: INSOMNIA
     Dosage: ONE HALF ONCE DAILY
     Route: 048
     Dates: start: 20071201
  10. ARADOIS [Concomitant]
     Indication: HYPERTENSION
     Route: 048
     Dates: start: 20080331
  11. LIPITOR [Concomitant]
     Indication: HYPERCHOLESTEROLAEMIA
     Route: 048

REACTIONS (4)
  - DRY SKIN [None]
  - ILEUS PARALYTIC [None]
  - METASTASIS [None]
  - RASH [None]
